FAERS Safety Report 6345478-1 (Version None)
Quarter: 2009Q3

REPORT INFORMATION
  Report Type: 
  Country: None (occurrence: None)
  Receive Date: 20090909
  Receipt Date: 20090903
  Transmission Date: 20100115
  Serious: Yes (Hospitalization)
  Sender: FDA-Public Use
  Company Number: FR-BRISTOL-MYERS SQUIBB COMPANY-14761126

PATIENT
  Age: 63 Year
  Sex: Female
  Weight: 53 kg

DRUGS (4)
  1. IXABEPILONE [Suspect]
     Indication: BREAST CANCER
     Route: 042
     Dates: start: 20090821, end: 20090821
  2. CYCLOPHOSPHAMIDE [Suspect]
     Indication: BREAST CANCER
     Dosage: CULULATIVE DOSE:2790MG.
     Route: 042
     Dates: start: 20090619, end: 20090731
  3. FLUOROURACIL [Suspect]
     Indication: BREAST CANCER
     Dosage: CUMULATIVE DOSE:2790MG.
     Route: 042
     Dates: start: 20090619, end: 20090731
  4. EPIRUBICIN HCL [Suspect]
     Indication: BREAST CANCER
     Dosage: CUMULATIVE DOSE:558MG.
     Route: 042
     Dates: start: 20090619, end: 20090731

REACTIONS (10)
  - APHAGIA [None]
  - DECREASED APPETITE [None]
  - DERMATITIS BULLOUS [None]
  - NEUTROPENIA [None]
  - ODYNOPHAGIA [None]
  - PYREXIA [None]
  - STEVENS-JOHNSON SYNDROME [None]
  - STOMATITIS [None]
  - VULVAR EROSION [None]
  - WEIGHT DECREASED [None]
